FAERS Safety Report 22305130 (Version 2)
Quarter: 2023Q2

REPORT INFORMATION
  Report Type: Spontaneous
  Country: US (occurrence: US)
  Receive Date: 20230510
  Receipt Date: 20230613
  Transmission Date: 20230721
  Serious: No
  Sender: FDA-Public Use
  Company Number: US-PFIZER INC-PV202200041802

PATIENT
  Age: 64 Year
  Sex: Female

DRUGS (2)
  1. RETACRIT [Suspect]
     Active Substance: EPOETIN ALFA-EPBX
     Indication: Anaemia
     Dosage: 10000 IU/ML, EVERY 14 DAYS
  2. RETACRIT [Suspect]
     Active Substance: EPOETIN ALFA-EPBX
     Indication: Chronic kidney disease

REACTIONS (2)
  - Blood pressure abnormal [Recovering/Resolving]
  - Off label use [Unknown]
